FAERS Safety Report 7134010-0 (Version None)
Quarter: 2010Q4

REPORT INFORMATION
  Report Type: 
  Country: None (occurrence: None)
  Receive Date: 20101203
  Receipt Date: 20101122
  Transmission Date: 20110411
  Serious: Yes (Hospitalization)
  Sender: FDA-Public Use
  Company Number: DE-ABBOTT-10P-062-0684247-00

PATIENT
  Sex: Female
  Weight: 51 kg

DRUGS (1)
  1. HUMIRA [Suspect]
     Indication: RHEUMATOID ARTHRITIS
     Route: 058
     Dates: start: 20100701, end: 20100901

REACTIONS (8)
  - BRONCHIECTASIS [None]
  - BRONCHITIS CHRONIC [None]
  - GASTRITIS [None]
  - HAEMOPHILUS INFECTION [None]
  - LUNG ABSCESS [None]
  - PNEUMONIA PRIMARY ATYPICAL [None]
  - UPPER RESPIRATORY TRACT INFECTION [None]
  - WEIGHT DECREASED [None]
